FAERS Safety Report 22033498 (Version 3)
Quarter: 2024Q1

REPORT INFORMATION
  Report Type: Spontaneous
  Country: GB (occurrence: GB)
  Receive Date: 20230224
  Receipt Date: 20240208
  Transmission Date: 20240409
  Serious: Yes (Other)
  Sender: FDA-Public Use
  Company Number: GB-CELLTRION HEALTHCARE HUNGARY KFT-2023GB000151

PATIENT

DRUGS (8)
  1. REMICADE [Suspect]
     Active Substance: INFLIXIMAB
     Indication: Colitis ulcerative
     Dosage: 200
     Route: 041
  2. INFLIXIMAB [Suspect]
     Active Substance: INFLIXIMAB
     Indication: Colitis ulcerative
     Route: 058
  3. INFLIXIMAB [Suspect]
     Active Substance: INFLIXIMAB
     Dosage: 12 MG EVERY 2 WEEKS/FORTNIGHTLY
     Route: 058
     Dates: start: 20230413
  4. INFLIXIMAB [Suspect]
     Active Substance: INFLIXIMAB
     Dosage: 12 MG EVERY 2 WEEKS/FORTNIGHTLY
     Route: 058
     Dates: start: 20230427
  5. INFLIXIMAB [Suspect]
     Active Substance: INFLIXIMAB
     Dosage: 12 MG EVERY 2 WEEKS
     Route: 058
     Dates: start: 20230112
  6. INFLIXIMAB [Suspect]
     Active Substance: INFLIXIMAB
     Dosage: 2 REMSIMA INJECTION
     Route: 058
     Dates: start: 20230126
  7. INFLIXIMAB [Suspect]
     Active Substance: INFLIXIMAB
     Dosage: 12 MG EVERY 2 WEEKS
     Route: 058
     Dates: start: 20230112
  8. FYBOGEL [Concomitant]
     Active Substance: HERBALS\PLANTAGO OVATA SEED

REACTIONS (32)
  - Rectal haemorrhage [Recovered/Resolved]
  - Rheumatoid arthritis [Unknown]
  - Loss of consciousness [Not Recovered/Not Resolved]
  - Anorectal swelling [Recovered/Resolved]
  - Feeling hot [Recovered/Resolved]
  - Toothache [Recovered/Resolved]
  - Dental caries [Recovered/Resolved]
  - Tooth extraction [Recovered/Resolved]
  - Pain in jaw [Recovered/Resolved]
  - Stress [Not Recovered/Not Resolved]
  - Injection site mass [Not Recovered/Not Resolved]
  - Abdominal distension [Not Recovered/Not Resolved]
  - Exposure via skin contact [Recovered/Resolved]
  - Condition aggravated [Not Recovered/Not Resolved]
  - Arthralgia [Not Recovered/Not Resolved]
  - Abdominal pain [Not Recovered/Not Resolved]
  - Abdominal discomfort [Not Recovered/Not Resolved]
  - Gastrointestinal motility disorder [Not Recovered/Not Resolved]
  - Infection [Recovered/Resolved]
  - Abdominal pain upper [Recovered/Resolved]
  - Dyspnoea [Not Recovered/Not Resolved]
  - Injection site pain [Recovered/Resolved]
  - Injection site pain [Recovered/Resolved]
  - Injection site pain [Recovered/Resolved]
  - Injection site pain [Recovered/Resolved]
  - Frequent bowel movements [Recovered/Resolved]
  - Product leakage [Unknown]
  - Accidental exposure to product [Unknown]
  - Wrong technique in product usage process [Unknown]
  - Treatment delayed [Unknown]
  - Intentional dose omission [Recovered/Resolved]
  - Drug ineffective [Unknown]

NARRATIVE: CASE EVENT DATE: 20230112
